FAERS Safety Report 15707804 (Version 1)
Quarter: 2018Q4

REPORT INFORMATION
  Report Type: Spontaneous
  Country: US (occurrence: US)
  Receive Date: 20181211
  Receipt Date: 20181211
  Transmission Date: 20190205
  Serious: Yes (Life-Threatening, Hospitalization, Other)
  Sender: FDA-Public Use
  Company Number: US-STRIDES ARCOLAB LIMITED-2018SP010355

PATIENT
  Age: 72 Year
  Sex: Male

DRUGS (2)
  1. IBUPROFEN. [Suspect]
     Active Substance: IBUPROFEN
     Indication: BACK PAIN
     Dosage: UNK
     Route: 065
  2. ASPIRIN                            /00002701/ [Suspect]
     Active Substance: ASPIRIN
     Indication: BACK PAIN
     Dosage: UNK
     Route: 065

REACTIONS (12)
  - Gastritis erosive [Recovered/Resolved]
  - Abdominal tenderness [Recovered/Resolved]
  - Septic shock [Recovered/Resolved]
  - Haematemesis [Recovered/Resolved]
  - Haemodynamic instability [Recovered/Resolved]
  - Pallor [Recovered/Resolved]
  - Upper gastrointestinal haemorrhage [Recovered/Resolved]
  - Gastric ulcer haemorrhage [Recovered/Resolved]
  - Abdominal distension [Recovered/Resolved]
  - Shock haemorrhagic [Recovered/Resolved]
  - Epigastric discomfort [Recovered/Resolved]
  - Hypotension [Recovered/Resolved]
